FAERS Safety Report 19012480 (Version 2)
Quarter: 2021Q2

REPORT INFORMATION
  Report Type: Spontaneous
  Country: JP (occurrence: JP)
  Receive Date: 20210315
  Receipt Date: 20210428
  Transmission Date: 20210717
  Serious: Yes (Hospitalization, Other)
  Sender: FDA-Public Use
  Company Number: JP-009507513-2103JPN000775J

PATIENT
  Age: 68 Year
  Sex: Male

DRUGS (3)
  1. ABRAXANE [Suspect]
     Active Substance: PACLITAXEL
     Dosage: UNK
     Route: 041
  2. CARBOPLATIN. [Suspect]
     Active Substance: CARBOPLATIN
     Dosage: UNK
     Route: 041
  3. KEYTRUDA [Suspect]
     Active Substance: PEMBROLIZUMAB
     Indication: LUNG SQUAMOUS CELL CARCINOMA STAGE IV
     Dosage: 200 MILLIGRAM, Q3W
     Route: 041

REACTIONS (1)
  - Immune-mediated cholangitis [Recovering/Resolving]
